FAERS Safety Report 17901532 (Version 1)
Quarter: 2020Q2

REPORT INFORMATION
  Report Type: Spontaneous
  Country: IN (occurrence: IN)
  Receive Date: 20200616
  Receipt Date: 20200616
  Transmission Date: 20200714
  Serious: Yes (Death)
  Sender: FDA-Public Use
  Company Number: IN-AMNEAL PHARMACEUTICALS-2020-AMRX-01716

PATIENT
  Age: 50 Year
  Sex: Male

DRUGS (3)
  1. BORTEZOMIB. [Suspect]
     Active Substance: BORTEZOMIB
     Indication: PRIMARY AMYLOIDOSIS
     Dosage: 2 CYCLES
     Route: 065
  2. CYCLOPHOSPHAMIDE. [Suspect]
     Active Substance: CYCLOPHOSPHAMIDE
     Indication: PRIMARY AMYLOIDOSIS
     Dosage: 2 CYCLES
     Route: 065
  3. DEXAMETHASONE SODIUM PHOSPHATE. [Suspect]
     Active Substance: DEXAMETHASONE SODIUM PHOSPHATE
     Indication: PRIMARY AMYLOIDOSIS
     Dosage: 2 CYCLES
     Route: 065

REACTIONS (3)
  - Urosepsis [Fatal]
  - Tumour lysis syndrome [Fatal]
  - Multiple organ dysfunction syndrome [Fatal]
